FAERS Safety Report 17771340 (Version 1)
Quarter: 2020Q2

REPORT INFORMATION
  Report Type: Spontaneous
  Country: US (occurrence: US)
  Receive Date: 20200512
  Receipt Date: 20200512
  Transmission Date: 20200714
  Serious: No
  Sender: FDA-Public Use
  Company Number: US-PERRIGO-20US002878

PATIENT
  Age: 29 Year
  Sex: Female
  Weight: 63.49 kg

DRUGS (1)
  1. MICONAZOLE 3 COMBINATION PACK [Suspect]
     Active Substance: MICONAZOLE NITRATE
     Indication: VULVOVAGINAL PRURITUS
     Dosage: SMALL AMOUNT, SINGLE
     Route: 061
     Dates: start: 20200218, end: 20200218

REACTIONS (5)
  - Vulvovaginal swelling [Recovering/Resolving]
  - Vulvovaginal discomfort [Recovering/Resolving]
  - Vulvovaginal inflammation [Recovering/Resolving]
  - Vulvovaginal erythema [Recovering/Resolving]
  - Vulvovaginal burning sensation [Recovering/Resolving]

NARRATIVE: CASE EVENT DATE: 20200218
